FAERS Safety Report 6848275-3 (Version None)
Quarter: 2010Q3

REPORT INFORMATION
  Report Type: 
  Country: None (occurrence: None)
  Receive Date: 20100714
  Receipt Date: 20100706
  Transmission Date: 20110219
  Serious: Yes (Other)
  Sender: FDA-Public Use
  Company Number: 014974

PATIENT
  Age: 70 Year
  Sex: Male

DRUGS (8)
  1. KEPPRA [Suspect]
     Indication: PARTIAL SEIZURES
     Dosage: (250 MG BID ORAL), (DOSE REDUCED ORAL)
     Route: 048
     Dates: start: 20100526
  2. BIMATOPROST [Concomitant]
  3. BRIMONIDINE [Concomitant]
  4. COSOPT [Concomitant]
  5. DIFFLAM /00053202/ [Concomitant]
  6. HUMAN MIXTARD /00806401/ [Concomitant]
  7. PHENOXYMETHYLPENICILLIN [Concomitant]
  8. TINZAPARIN [Concomitant]

REACTIONS (3)
  - HEPATOTOXICITY [None]
  - LIVER FUNCTION TEST ABNORMAL [None]
  - SERUM FERRITIN INCREASED [None]
